FAERS Safety Report 4684545-5 (Version None)
Quarter: 2005Q2

REPORT INFORMATION
  Report Type: 
  Country: None (occurrence: None)
  Receive Date: 20050531
  Receipt Date: 20041206
  Transmission Date: 20051028
  Serious: Yes (Hospitalization)
  Sender: FDA-Public Use
  Company Number: US_010974120

PATIENT
  Age: 70 Year
  Sex: Female

DRUGS (3)
  1. ZYPREXA [Suspect]
     Indication: BIPOLAR DISORDER
     Dosage: 10 MG/ 1 DAY
     Dates: start: 20001101, end: 20001217
  2. DEPAKOTE [Concomitant]
  3. ZOLOFT [Concomitant]

REACTIONS (10)
  - ANXIETY [None]
  - ASTHMA [None]
  - DIARRHOEA [None]
  - HEPATIC ENZYME INCREASED [None]
  - MOBILITY DECREASED [None]
  - MUSCLE RIGIDITY [None]
  - PNEUMONIA [None]
  - STRESS [None]
  - VIRAL INFECTION [None]
  - VOMITING [None]
